FAERS Safety Report 7658146-0 (Version None)
Quarter: 2011Q3

REPORT INFORMATION
  Report Type: 
  Country: None (occurrence: None)
  Receive Date: 20110802
  Receipt Date: 20110718
  Transmission Date: 20111222
  Serious: Yes (Hospitalization)
  Sender: FDA-Public Use
  Company Number: 2011MA008986

PATIENT
  Age: 67 Year
  Sex: Male

DRUGS (6)
  1. METFORMIN HCL [Suspect]
     Indication: DIABETES MELLITUS
  2. CITALOPRAM HYDROBROMIDE [Suspect]
     Indication: POSTOPERATIVE CARE
  3. ROSIGLITAZONE [Suspect]
  4. LINEZOLID [Suspect]
     Indication: POSTOPERATIVE CARE
  5. LINEZOLID [Suspect]
     Indication: ANTIBIOTIC THERAPY
  6. TEICOPLANIN (TEICOPLANIN) [Suspect]
     Indication: ANTIBIOTIC THERAPY

REACTIONS (8)
  - STAPHYLOCOCCAL INFECTION [None]
  - SEROTONIN SYNDROME [None]
  - VOMITING [None]
  - JOINT ABSCESS [None]
  - RENAL IMPAIRMENT [None]
  - NAUSEA [None]
  - POST PROCEDURAL COMPLICATION [None]
  - DIARRHOEA [None]
